FAERS Safety Report 21394210 (Version 1)
Quarter: 2022Q3

REPORT INFORMATION
  Report Type: Report from Study
  Country: US (occurrence: US)
  Receive Date: 20220930
  Receipt Date: 20220930
  Transmission Date: 20221026
  Serious: Yes (Other)
  Sender: FDA-Public Use
  Company Number: US-BRISTOL-MYERS SQUIBB COMPANY-2022-113430

PATIENT
  Age: 57 Year
  Sex: Female
  Weight: 59.6 kg

DRUGS (1)
  1. REVLIMID [Suspect]
     Active Substance: LENALIDOMIDE
     Indication: Follicular lymphoma
     Route: 048
     Dates: start: 20220414

REACTIONS (3)
  - Suicidal ideation [Recovered/Resolved]
  - Taste disorder [Unknown]
  - Fatigue [Unknown]
